FAERS Safety Report 7582608-8 (Version None)
Quarter: 2011Q2

REPORT INFORMATION
  Report Type: 
  Country: None (occurrence: None)
  Receive Date: 20110630
  Receipt Date: 20110622
  Transmission Date: 20111010
  Serious: Yes (Death, Hospitalization)
  Sender: FDA-Public Use
  Company Number: IN-ELI_LILLY_AND_COMPANY-IN201106006954

PATIENT
  Age: 60 Year
  Sex: Female

DRUGS (3)
  1. CALCIUM CARBONATE [Concomitant]
     Indication: SUPPLEMENTATION THERAPY
  2. VITAMIN D [Concomitant]
     Indication: SUPPLEMENTATION THERAPY
  3. FORTEO [Suspect]
     Indication: OSTEOPOROSIS
     Dosage: 20 UG, QD
     Route: 058
     Dates: start: 20101201

REACTIONS (2)
  - RESPIRATORY TRACT INFECTION [None]
  - GENERAL PHYSICAL HEALTH DETERIORATION [None]
